FAERS Safety Report 14393375 (Version 1)
Quarter: 2018Q1

REPORT INFORMATION
  Report Type: Spontaneous
  Country: US (occurrence: US)
  Receive Date: 20180114
  Receipt Date: 20180114
  Transmission Date: 20180509
  Serious: Yes (Disabling, Other)
  Sender: FDA-Public Use
  Company Number: None

PATIENT
  Age: 34 Year
  Sex: Female
  Weight: 67.5 kg

DRUGS (7)
  1. NALTREXONE [Concomitant]
     Active Substance: NALTREXONE
  2. AMITRIPTILINE [Concomitant]
  3. TOPICAL AND ORAL STEROID [Suspect]
     Active Substance: UNSPECIFIED INGREDIENT
     Indication: ECZEMA
     Route: 061
  4. HYDROXYZINE [Concomitant]
     Active Substance: HYDROXYZINE HYDROCHLORIDE
  5. LORAZEPAM. [Concomitant]
     Active Substance: LORAZEPAM
  6. CYCLOSPORINE. [Concomitant]
     Active Substance: CYCLOSPORINE
  7. LEXAPRO [Concomitant]
     Active Substance: ESCITALOPRAM OXALATE

REACTIONS (5)
  - Drug ineffective [None]
  - Erythema [None]
  - Steroid withdrawal syndrome [None]
  - Eczema [None]
  - Drug dependence [None]

NARRATIVE: CASE EVENT DATE: 20150120
